FAERS Safety Report 9711070 (Version 2)
Quarter: 2013Q4

REPORT INFORMATION
  Report Type: Spontaneous
  Country: JP (occurrence: JP)
  Receive Date: 20131126
  Receipt Date: 20131216
  Transmission Date: 20140711
  Serious: Yes (Hospitalization)
  Sender: FDA-Public Use
  Company Number: JP-BAYER-2013-140190

PATIENT
  Age: 73 Year
  Sex: Female

DRUGS (13)
  1. AVELOX [Suspect]
     Indication: DEVICE RELATED INFECTION
     Dosage: 400 MG, QD
     Route: 048
     Dates: start: 201105
  2. MAINTATE [Concomitant]
     Dosage: UNK
     Route: 048
  3. CRESTOR [Concomitant]
     Dosage: UNK
     Route: 048
  4. ADALAT CR [Concomitant]
     Dosage: UNK
     Route: 048
  5. PLETAAL [Concomitant]
     Dosage: UNK
     Route: 048
  6. TAKEPRON [Concomitant]
     Dosage: UNK
     Route: 048
  7. BAYASPIRIN [Concomitant]
     Dosage: UNK
     Route: 048
  8. ATELEC [Concomitant]
     Dosage: UNK
     Route: 048
  9. DETANTOL [Concomitant]
     Dosage: UNK
     Route: 048
  10. MEILAX [Concomitant]
     Dosage: UNK
     Route: 048
  11. BIOFERMIN R [Concomitant]
     Dosage: UNK
     Route: 048
  12. DIART [Concomitant]
     Dosage: UNK
     Route: 048
  13. PROSTALIN [Concomitant]
     Dosage: UNK
     Route: 048

REACTIONS (2)
  - Nephrotic syndrome [Not Recovered/Not Resolved]
  - Off label use [None]
